FAERS Safety Report 6766912-9 (Version None)
Quarter: 2010Q2

REPORT INFORMATION
  Report Type: 
  Country: None (occurrence: None)
  Receive Date: 20100525
  Receipt Date: 20100511
  Transmission Date: 20101027
  Serious: Yes (Other)
  Sender: FDA-Public Use
  Company Number: OMX-2010-00026

PATIENT
  Age: 81 Year
  Sex: Female

DRUGS (9)
  1. EVICEL [Suspect]
     Indication: HAEMOSTASIS
     Dosage: 250 TO 400 MG AS A SINGLE DOSE
     Dates: start: 20100121, end: 20100121
  2. PRESSURE REGULATOR DEVICE [Suspect]
     Dates: start: 20100121, end: 20100121
  3. LORAZEPAM [Concomitant]
  4. LACTULOSE [Concomitant]
  5. ACETAMINOPHEN [Concomitant]
  6. PRADAXA [Concomitant]
  7. OMEPRAZOLE [Concomitant]
  8. LOPERAMIDE HCL [Concomitant]
  9. SMECTA [Concomitant]

REACTIONS (5)
  - DRUG INEFFECTIVE [None]
  - HAEMATOMA [None]
  - IMPAIRED HEALING [None]
  - SCAR [None]
  - WOUND NECROSIS [None]
